FAERS Safety Report 13471743 (Version 1)
Quarter: 2017Q2

REPORT INFORMATION
  Report Type: Spontaneous
  Country: GB (occurrence: GB)
  Receive Date: 20170424
  Receipt Date: 20170424
  Transmission Date: 20170830
  Serious: Yes (Disabling)
  Sender: FDA-Public Use
  Company Number: GB-SUN PHARMACEUTICAL INDUSTRIES LTD-2017RR-138810

PATIENT
  Age: 75 Year
  Sex: Female
  Weight: 88 kg

DRUGS (1)
  1. CODEINE [Suspect]
     Active Substance: CODEINE
     Indication: PRODUCT USED FOR UNKNOWN INDICATION
     Route: 065
     Dates: start: 20170327

REACTIONS (2)
  - Drug hypersensitivity [Unknown]
  - Hypersomnia [Unknown]

NARRATIVE: CASE EVENT DATE: 20170330
